FAERS Safety Report 5019411-9 (Version None)
Quarter: 2006Q2

REPORT INFORMATION
  Report Type: 
  Country: None (occurrence: None)
  Receive Date: 20060606
  Receipt Date: 20060530
  Transmission Date: 20061013
  Serious: Yes (Other)
  Sender: FDA-Public Use
  Company Number: 2006UW10380

PATIENT
  Age: 70 Year
  Sex: Female
  Weight: 73.9 kg

DRUGS (2)
  1. IRESSA [Suspect]
     Indication: NON-SMALL CELL LUNG CANCER
     Route: 048
     Dates: start: 20031201
  2. VITAMINS [Concomitant]

REACTIONS (5)
  - GROWTH OF EYELASHES [None]
  - PHOTOPSIA [None]
  - RETINAL DETACHMENT [None]
  - VISUAL ACUITY REDUCED [None]
  - VITREOUS FLOATERS [None]
